FAERS Safety Report 9292310 (Version 1)
Quarter: 2013Q2

REPORT INFORMATION
  Report Type: Report from Study
  Country: AR (occurrence: AR)
  Receive Date: 20130516
  Receipt Date: 20130516
  Transmission Date: 20140414
  Serious: Yes (Death)
  Sender: FDA-Public Use
  Company Number: PHHY2013AR048550

PATIENT
  Sex: Male

DRUGS (1)
  1. DIOVAN D [Suspect]
     Indication: BLOOD PRESSURE
     Dosage: 1 DF (320 MG VALS + 25 MG HCT), DAILY
     Route: 048
     Dates: start: 2008

REACTIONS (1)
  - Haemorrhagic stroke [Fatal]
